FAERS Safety Report 6270656-X (Version None)
Quarter: 2009Q3

REPORT INFORMATION
  Report Type: 
  Country: None (occurrence: None)
  Receive Date: 20090714
  Receipt Date: 20090629
  Transmission Date: 20100115
  Serious: Yes (Disabling)
  Sender: FDA-Public Use
  Company Number: ADE2009-0702

PATIENT
  Age: 71 Year
  Sex: Female
  Weight: 63 kg

DRUGS (5)
  1. FLUOXETINE [Suspect]
     Indication: PANIC ATTACK
     Dosage: 20MG, DAILY, ORAL
     Route: 048
     Dates: start: 20060721
  2. ATARAX [Concomitant]
  3. LEVOTHYROXINE SODIUM [Concomitant]
  4. LIPITOR [Concomitant]
  5. SERTRALINE HYDROCHLORIDE [Concomitant]

REACTIONS (3)
  - DYSPNOEA [None]
  - GLOSSITIS [None]
  - SWOLLEN TONGUE [None]
